FAERS Safety Report 9642305 (Version 3)
Quarter: 2013Q4

REPORT INFORMATION
  Report Type: Spontaneous
  Country: US (occurrence: US)
  Receive Date: 20131024
  Receipt Date: 20131121
  Transmission Date: 20140711
  Serious: No
  Sender: FDA-Public Use
  Company Number: US-BIOGENIDEC-2013BI099889

PATIENT
  Age: 33 Year
  Sex: Female

DRUGS (1)
  1. TYSABRI [Suspect]
     Indication: MULTIPLE SCLEROSIS
     Route: 042
     Dates: start: 20130411

REACTIONS (6)
  - Poor venous access [Recovered/Resolved]
  - Musculoskeletal disorder [Unknown]
  - Injection site pain [Recovered/Resolved]
  - Central venous catheterisation [Recovered/Resolved]
  - Pain in extremity [Unknown]
  - Abasia [Unknown]
